FAERS Safety Report 5588431-8 (Version None)
Quarter: 2008Q1

REPORT INFORMATION
  Report Type: 
  Country: None (occurrence: None)
  Receive Date: 20080111
  Receipt Date: 20080107
  Transmission Date: 20080703
  Serious: Yes (Death, Life-Threatening)
  Sender: FDA-Public Use
  Company Number: JP-ASTRAZENECA-2007AP08153

PATIENT
  Age: 51 Year
  Sex: Male

DRUGS (4)
  1. CRESTOR [Suspect]
     Indication: HYPERLIPIDAEMIA
     Route: 048
  2. AMARYL [Concomitant]
     Indication: DIABETES MELLITUS
     Route: 048
  3. BASEN OD [Concomitant]
     Indication: DIABETES MELLITUS
     Route: 048
  4. CONIEL [Concomitant]
     Indication: HYPERTENSION
     Route: 048

REACTIONS (6)
  - DEATH [None]
  - HYPOCHLORAEMIA [None]
  - HYPONATRAEMIA [None]
  - HYPOTHERMIA [None]
  - RENAL FAILURE ACUTE [None]
  - RHABDOMYOLYSIS [None]
